FAERS Safety Report 7864780-5 (Version None)
Quarter: 2011Q4

REPORT INFORMATION
  Report Type: 
  Country: None (occurrence: None)
  Receive Date: 20111028
  Receipt Date: 20110308
  Transmission Date: 20120403
  Serious: No
  Sender: FDA-Public Use
  Company Number: US-GLAXOSMITHKLINE-A0669498A

PATIENT
  Age: 79 Year
  Sex: Male

DRUGS (11)
  1. ADVAIR DISKUS 100/50 [Suspect]
     Indication: CHRONIC OBSTRUCTIVE PULMONARY DISEASE
     Dosage: 1PUFF TWICE PER DAY
     Route: 055
     Dates: start: 20070101, end: 20070601
  2. ASPIRIN [Concomitant]
  3. BLOOD PRESSURE MEDICATION [Concomitant]
  4. SEREVENT [Suspect]
     Indication: EMPHYSEMA
     Dosage: 50MCG TWICE PER DAY
     Route: 055
     Dates: start: 20080225
  5. NYSTATIN [Concomitant]
  6. ADVAIR DISKUS 100/50 [Suspect]
     Dosage: 1PUFF PER DAY
     Route: 055
     Dates: start: 20070813
  7. PROSCAR [Concomitant]
  8. MOUTHWASH [Concomitant]
  9. PRONEB [Concomitant]
  10. ANTIBIOTIC [Concomitant]
  11. XOPENEX [Concomitant]

REACTIONS (13)
  - DRY THROAT [None]
  - CANDIDIASIS [None]
  - BUCCAL MUCOSAL ROUGHENING [None]
  - PRODUCTIVE COUGH [None]
  - PHARYNGITIS [None]
  - DYSPNOEA [None]
  - BLOOD BLISTER [None]
  - MOUTH ULCERATION [None]
  - THROAT IRRITATION [None]
  - DIZZINESS [None]
  - LUNG INFECTION [None]
  - HYPERTENSION [None]
  - ADVERSE DRUG REACTION [None]
